FAERS Safety Report 16784253 (Version 1)
Quarter: 2019Q3

REPORT INFORMATION
  Report Type: Spontaneous
  Country: US (occurrence: US)
  Receive Date: 20190909
  Receipt Date: 20190909
  Transmission Date: 20191005
  Serious: No
  Sender: FDA-Public Use
  Company Number: US-009507513-1909USA001053

PATIENT
  Age: 80 Year
  Sex: Male

DRUGS (3)
  1. BEXAROTENE. [Suspect]
     Active Substance: BEXAROTENE
     Indication: CUTANEOUS T-CELL LYMPHOMA
     Dosage: UNK
     Route: 048
  2. INTRON A [Suspect]
     Active Substance: INTERFERON ALFA-2B
     Indication: CUTANEOUS T-CELL LYMPHOMA
     Dosage: UNK
  3. ZOLINZA [Suspect]
     Active Substance: VORINOSTAT
     Indication: CUTANEOUS T-CELL LYMPHOMA
     Dosage: UNK
     Route: 048

REACTIONS (1)
  - Treatment failure [Unknown]
